FAERS Safety Report 17773344 (Version 1)
Quarter: 2020Q2

REPORT INFORMATION
  Report Type: Spontaneous
  Country: ES (occurrence: ES)
  Receive Date: 20200513
  Receipt Date: 20200513
  Transmission Date: 20200714
  Serious: Yes (Hospitalization, Other)
  Sender: FDA-Public Use
  Company Number: ES-AUROBINDO-AUR-APL-2020-024438

PATIENT
  Age: 87 Year
  Sex: Female

DRUGS (6)
  1. TRAMADOL. [Suspect]
     Active Substance: TRAMADOL
     Indication: PRODUCT USED FOR UNKNOWN INDICATION
     Dosage: 100 MILLIGRAM PER DECILITRE, ONCE A DAY
     Route: 048
     Dates: start: 201608
  2. PARACETAMOL [Concomitant]
     Active Substance: ACETAMINOPHEN
     Indication: OSTEOARTHRITIS
     Dosage: 3 GRAM, ONCE A DAY
     Route: 048
  3. BUPRENORPHINE. [Interacting]
     Active Substance: BUPRENORPHINE
     Indication: OSTEOARTHRITIS
     Dosage: 10 MICROGRAM, ONCE A DAY
     Route: 062
     Dates: start: 201704, end: 20170521
  4. NAPROXEN SODIUM. [Interacting]
     Active Substance: NAPROXEN SODIUM
     Indication: OSTEOARTHRITIS
     Dosage: 1.1 GRAM, ONCE A DAY
     Route: 048
     Dates: start: 20170424, end: 20170521
  5. TROMALYT [Interacting]
     Active Substance: ASPIRIN
     Indication: ISCHAEMIC CARDIOMYOPATHY
     Dosage: 300 MILLIGRAM, ONCE A DAY
     Route: 048
     Dates: end: 20170521
  6. METAMIZOLE [Concomitant]
     Active Substance: METAMIZOLE
     Indication: OSTEOARTHRITIS
     Dosage: 1.15 GRAM, ONCE A DAY
     Route: 048
     Dates: start: 201007, end: 20170521

REACTIONS (1)
  - Lower gastrointestinal haemorrhage [Recovered/Resolved]

NARRATIVE: CASE EVENT DATE: 20170520
